FAERS Safety Report 6173389-3 (Version None)
Quarter: 2009Q2

REPORT INFORMATION
  Report Type: 
  Country: None (occurrence: None)
  Receive Date: 20090428
  Receipt Date: 20090422
  Transmission Date: 20091009
  Serious: Yes (Other)
  Sender: FDA-Public Use
  Company Number: GXKR2009DE04884

PATIENT
  Age: 23 Year
  Sex: Female
  Weight: 60 kg

DRUGS (1)
  1. LOPEDIUM AKUT BEI AKUTEM DURCHFALL (NGX) (LOPERAMIDE) CAPSULE, 2MG [Suspect]
     Dosage: 1 DF, QD, ORAL
     Route: 048
     Dates: start: 20090322, end: 20090322

REACTIONS (1)
  - SYNCOPE [None]
